FAERS Safety Report 21163198 (Version 4)
Quarter: 2023Q1

REPORT INFORMATION
  Report Type: Spontaneous
  Country: US (occurrence: US)
  Receive Date: 20220802
  Receipt Date: 20230201
  Transmission Date: 20230418
  Serious: No
  Sender: FDA-Public Use
  Company Number: US-PFIZER INC-PV202200033675

PATIENT
  Age: 52 Year
  Sex: Female
  Weight: 87.982 kg

DRUGS (1)
  1. XELJANZ [Suspect]
     Active Substance: TOFACITINIB CITRATE
     Indication: Psoriatic arthropathy
     Dosage: 5 MG, 2X/DAY
     Route: 048
     Dates: start: 20220113, end: 20220622

REACTIONS (6)
  - Trigeminal neuralgia [Unknown]
  - Migraine [Unknown]
  - Injection site reaction [Unknown]
  - Sensitivity to weather change [Unknown]
  - Condition aggravated [Unknown]
  - Product dose omission issue [Unknown]
